FAERS Safety Report 13378460 (Version 1)
Quarter: 2017Q1

REPORT INFORMATION
  Report Type: Spontaneous
  Country: IT (occurrence: IT)
  Receive Date: 20170328
  Receipt Date: 20170328
  Transmission Date: 20170429
  Serious: Yes (Hospitalization)
  Sender: FDA-Public Use
  Company Number: IT-TEVA-753315ROM

PATIENT
  Age: 87 Year
  Sex: Female

DRUGS (6)
  1. FLUOXETINE [Concomitant]
     Active Substance: FLUOXETINE HYDROCHLORIDE
     Dosage: 20MG/DAY
     Route: 065
  2. RAMIPRIL. [Concomitant]
     Active Substance: RAMIPRIL
     Dosage: 2.5MG/DAY
     Route: 065
  3. LANSOPRAZOLE. [Concomitant]
     Active Substance: LANSOPRAZOLE
     Dosage: 30MG/DAY
     Route: 065
  4. SALBUTAMOL, FLUTICASONE PROPIONATE [Concomitant]
     Dosage: 50/250MICROG TWICE A DAY
     Route: 065
  5. LORAZEPAM. [Concomitant]
     Active Substance: LORAZEPAM
     Dosage: 2.5MG
     Route: 065
  6. RISPERIDONE. [Suspect]
     Active Substance: RISPERIDONE
     Dosage: 1MG/DAY
     Route: 065

REACTIONS (4)
  - Pulmonary infarction [Recovered/Resolved]
  - Pulmonary embolism [Recovered/Resolved]
  - Pleural effusion [Recovered/Resolved]
  - Deep vein thrombosis [Recovered/Resolved]
